FAERS Safety Report 6962507-2 (Version None)
Quarter: 2010Q3

REPORT INFORMATION
  Report Type: 
  Country: None (occurrence: None)
  Receive Date: 20100831
  Receipt Date: 20100820
  Transmission Date: 20110219
  Serious: Yes (Life-Threatening, Other)
  Sender: FDA-Public Use
  Company Number: TPA2010A04571

PATIENT
  Age: 77 Year
  Sex: Male
  Weight: 87.9 kg

DRUGS (8)
  1. DEXLANSOPRAZOLE [Suspect]
     Indication: GASTROOESOPHAGEAL REFLUX DISEASE
     Dosage: 30 MG, 1 IN 1 D, ORAL
     Route: 047
     Dates: start: 20091105, end: 20100701
  2. ALLOPURINOL [Concomitant]
  3. ZOCOR [Concomitant]
  4. NITROGLYCERIN [Concomitant]
  5. VITAMIN B6 [Concomitant]
  6. ASPIRIN [Concomitant]
  7. FERROU SULFATE (FERROUS SULFATE) [Concomitant]
  8. B12 INJECT (ALL OTHER THERAPEUTIC PRODUCTS) [Concomitant]

REACTIONS (2)
  - ANAEMIA HAEMOLYTIC AUTOIMMUNE [None]
  - SKIN HYPOPIGMENTATION [None]
